FAERS Safety Report 13489018 (Version 1)
Quarter: 2017Q2

REPORT INFORMATION
  Report Type: Report from Study
  Country: CN (occurrence: CN)
  Receive Date: 20170427
  Receipt Date: 20170427
  Transmission Date: 20170830
  Serious: Yes (Death)
  Sender: FDA-Public Use
  Company Number: CN-BAYER-2017-079322

PATIENT
  Sex: Male

DRUGS (3)
  1. ACETYLSALICYLIC ACID({=100 MG) [Suspect]
     Active Substance: ASPIRIN
     Indication: ANTIPLATELET THERAPY
     Dosage: UNK
  2. TICAGRELOR [Interacting]
     Active Substance: TICAGRELOR
     Indication: ANTIPLATELET THERAPY
     Dosage: UNK
  3. ENOXAPARIN [Interacting]
     Active Substance: ENOXAPARIN
     Dosage: UNK

REACTIONS (5)
  - Melaena [Fatal]
  - Drug administration error [Fatal]
  - Labelled drug-drug interaction medication error [Fatal]
  - Gastrointestinal haemorrhage [Fatal]
  - Hypotension [Fatal]
